FAERS Safety Report 10202507 (Version 1)
Quarter: 2014Q2

REPORT INFORMATION
  Report Type: Spontaneous
  Country: FR (occurrence: FR)
  Receive Date: 20140528
  Receipt Date: 20140528
  Transmission Date: 20141212
  Serious: Yes (Hospitalization, Other)
  Sender: FDA-Public Use
  Company Number: FR-ASTRAZENECA-2014SE35386

PATIENT
  Age: 22618 Day
  Sex: Male

DRUGS (13)
  1. XYLOCAINE JELLY [Suspect]
     Route: 066
     Dates: start: 20131219, end: 20140104
  2. SEROPLEX [Suspect]
     Route: 048
     Dates: start: 20140102, end: 20140104
  3. SEROPLEX [Suspect]
     Route: 048
     Dates: start: 20140120, end: 20140124
  4. HALDOL [Suspect]
     Dosage: 2MG/ML 275 DROPS PER DAY
     Route: 048
     Dates: start: 20130923, end: 20140104
  5. HALDOL [Suspect]
     Route: 048
     Dates: start: 20140120
  6. BACTRIM FORTE [Suspect]
     Route: 048
     Dates: start: 20131229, end: 20140104
  7. REVATIO [Concomitant]
     Route: 048
     Dates: start: 201202, end: 20140104
  8. XATRAL [Concomitant]
     Route: 048
     Dates: end: 20140104
  9. LASILIX [Concomitant]
     Route: 048
     Dates: start: 20130923, end: 20140104
  10. LEPTICUR [Concomitant]
     Route: 048
     Dates: start: 20130923, end: 20140104
  11. RIVOTRIL [Concomitant]
     Dosage: 2.5 MG/ML 40 DROPS PER DAY
     Route: 048
     Dates: end: 20140104
  12. SERESTA [Concomitant]
     Route: 048
     Dates: start: 20131029, end: 20140104
  13. TEGRETOL [Concomitant]
     Route: 048
     Dates: end: 20140104

REACTIONS (4)
  - Paralysis flaccid [Recovered/Resolved]
  - Oedema [Recovered/Resolved]
  - Prostatitis [Unknown]
  - Hallucination [Unknown]
